FAERS Safety Report 5503235-X (Version None)
Quarter: 2007Q4

REPORT INFORMATION
  Report Type: 
  Country: None (occurrence: None)
  Receive Date: 20071031
  Receipt Date: 20071022
  Transmission Date: 20080405
  Serious: Yes (Other)
  Sender: FDA-Public Use
  Company Number: US-PFIZER INC-2004119361

PATIENT
  Sex: Female
  Weight: 62.6 kg

DRUGS (6)
  1. NORVASC [Suspect]
     Indication: HYPERTENSION
     Route: 048
     Dates: start: 20040101, end: 20050201
  2. DIPHENHYDRAMINE HCL [Suspect]
     Indication: PAIN
     Route: 048
     Dates: start: 20041129
  3. SYNTHROID [Concomitant]
     Route: 065
  4. DYAZIDE [Concomitant]
     Route: 065
  5. ANTITHYROID PREPARATIONS [Concomitant]
     Dosage: FREQ:UNKNOWN
     Route: 065
  6. SYNTHROID [Concomitant]

REACTIONS (14)
  - BLOOD POTASSIUM DECREASED [None]
  - BLOOD PRESSURE INADEQUATELY CONTROLLED [None]
  - CHEST PAIN [None]
  - DYSPEPSIA [None]
  - HEADACHE [None]
  - HEART RATE INCREASED [None]
  - LIP SWELLING [None]
  - MALAISE [None]
  - PAIN [None]
  - PALMAR ERYTHEMA [None]
  - RENAL PAIN [None]
  - STOMACH DISCOMFORT [None]
  - WEIGHT INCREASED [None]
  - WHITE BLOOD CELL COUNT DECREASED [None]
